FAERS Safety Report 15709727 (Version 1)
Quarter: 2018Q4

REPORT INFORMATION
  Report Type: Spontaneous
  Country: US (occurrence: US)
  Receive Date: 20181211
  Receipt Date: 20181211
  Transmission Date: 20190205
  Serious: Yes (Hospitalization, Other)
  Sender: FDA-Public Use
  Company Number: US-MYLANLABS-2018M1091515

PATIENT

DRUGS (2)
  1. GASTROCROM [Suspect]
     Active Substance: CROMOLYN SODIUM
     Dosage: 300 MILLILITER
     Route: 042
     Dates: start: 201810
  2. GASTROCROM [Suspect]
     Active Substance: CROMOLYN SODIUM
     Indication: MASTOCYTOSIS
     Dosage: UNK
     Route: 048
     Dates: start: 2016

REACTIONS (11)
  - Nausea [Unknown]
  - Foreign body in gastrointestinal tract [Not Recovered/Not Resolved]
  - Pain in extremity [Unknown]
  - Loss of consciousness [Recovered/Resolved]
  - Incorrect route of product administration [Unknown]
  - Pain [Recovered/Resolved]
  - Blister [Unknown]
  - Hyperhidrosis [Recovered/Resolved]
  - Erythema [Recovered/Resolved]
  - Nephrolithiasis [Recovered/Resolved]
  - Burning sensation [Recovered/Resolved]

NARRATIVE: CASE EVENT DATE: 201810
